FAERS Safety Report 19822743 (Version 1)
Quarter: 2021Q3

REPORT INFORMATION
  Report Type: Spontaneous
  Country: US (occurrence: US)
  Receive Date: 20210913
  Receipt Date: 20210913
  Transmission Date: 20211014
  Serious: No
  Sender: FDA-Public Use
  Company Number: US-JNJFOC-20210903843

PATIENT
  Age: 33 Year

DRUGS (6)
  1. IBUPROFEN. [Suspect]
     Active Substance: IBUPROFEN
     Indication: SUNBURN
     Route: 065
     Dates: start: 202107
  2. IBUPROFEN. [Suspect]
     Active Substance: IBUPROFEN
     Indication: APPLICATION SITE DRYNESS
  3. TYLENOL [Suspect]
     Active Substance: ACETAMINOPHEN
     Indication: APPLICATION SITE DRYNESS
  4. ALOEGEL [Concomitant]
     Indication: APPLICATION SITE DRYNESS
  5. TYLENOL [Suspect]
     Active Substance: ACETAMINOPHEN
     Indication: SUNBURN
     Route: 065
     Dates: start: 202107
  6. ALOEGEL [Concomitant]
     Indication: SUNBURN
     Route: 061
     Dates: start: 202107

REACTIONS (1)
  - Product use in unapproved indication [Unknown]

NARRATIVE: CASE EVENT DATE: 202107
